FAERS Safety Report 21810895 (Version 1)
Quarter: 2023Q1

REPORT INFORMATION
  Report Type: Spontaneous
  Country: RU (occurrence: None)
  Receive Date: 20230103
  Receipt Date: 20230103
  Transmission Date: 20230418
  Serious: Yes (Other)
  Sender: FDA-Public Use
  Company Number: 2022A417899

PATIENT
  Age: 11 Year
  Sex: Female
  Weight: 37 kg

DRUGS (3)
  1. SYMBICORT [Suspect]
     Active Substance: BUDESONIDE\FORMOTEROL FUMARATE DIHYDRATE
     Dosage: 160/4.5 MCG UNKNWON UNKNOWN
     Route: 055
     Dates: start: 202102, end: 202112
  2. METHOTREXATE [Concomitant]
     Active Substance: METHOTREXATE
  3. SPIRIVA [Concomitant]
     Active Substance: TIOTROPIUM BROMIDE MONOHYDRATE

REACTIONS (1)
  - Long QT syndrome [Recovering/Resolving]
